FAERS Safety Report 11244488 (Version 1)
Quarter: 2015Q3

REPORT INFORMATION
  Report Type: Spontaneous
  Country: US (occurrence: US)
  Receive Date: 20150707
  Receipt Date: 20150707
  Transmission Date: 20151125
  Serious: No
  Sender: FDA-Public Use
  Company Number: US-GLAXOSMITHKLINE-US2015GSK084647

PATIENT
  Age: 49 Year
  Sex: Female

DRUGS (5)
  1. TRAMADOL HCL [Suspect]
     Active Substance: TRAMADOL HYDROCHLORIDE
     Indication: BACK PAIN
     Dosage: UNK, U
     Route: 065
     Dates: start: 2014
  2. CELEBREX [Suspect]
     Active Substance: CELECOXIB
     Indication: BACK PAIN
     Dosage: 250 MG, QD
     Route: 065
     Dates: start: 2002, end: 20150119
  3. IMITREX [Suspect]
     Active Substance: SUMATRIPTAN\SUMATRIPTAN SUCCINATE
     Indication: MIGRAINE
     Dosage: UNK, PRN
     Route: 065
     Dates: start: 2010
  4. LYRICA [Suspect]
     Active Substance: PREGABALIN
     Indication: BACK PAIN
     Dosage: 20 MG, BID
     Route: 065
     Dates: start: 201411
  5. LYRICA [Suspect]
     Active Substance: PREGABALIN
     Dosage: 20 MG, BID
     Route: 065
     Dates: start: 201501

REACTIONS (8)
  - Back pain [Recovered/Resolved]
  - Intervertebral disc annular tear [Unknown]
  - Intervertebral disc protrusion [Unknown]
  - Drug ineffective [Recovered/Resolved]
  - Neuralgia [Unknown]
  - Visual impairment [Not Recovered/Not Resolved]
  - Condition aggravated [Not Recovered/Not Resolved]
  - Nervous system disorder [Unknown]

NARRATIVE: CASE EVENT DATE: 20151114
